FAERS Safety Report 11769620 (Version 2)
Quarter: 2015Q4

REPORT INFORMATION
  Report Type: Report from Study
  Country: BR (occurrence: BR)
  Receive Date: 20151123
  Receipt Date: 20151208
  Transmission Date: 20160304
  Serious: Yes (Other)
  Sender: FDA-Public Use
  Company Number: PHHY2015BR152912

PATIENT
  Age: 76 Year
  Sex: Female
  Weight: 43 kg

DRUGS (5)
  1. ZOLPIDEM [Concomitant]
     Active Substance: ZOLPIDEM\ZOLPIDEM TARTRATE
     Indication: SLEEP DISORDER
     Dosage: 0.5 DF, QD (STARTED 3 YEARS AGO)
     Route: 048
  2. ACLASTA [Suspect]
     Active Substance: ZOLEDRONIC ACID
     Indication: OSTEOPOROSIS
     Dosage: 1 DF, Q12MO
     Route: 042
     Dates: start: 2014
  3. VALPROIC ACID. [Concomitant]
     Active Substance: VALPROIC ACID
     Indication: BIPOLAR DISORDER
     Dosage: 1 DF, QD (STARTED 3 MONTHS AGO)
     Route: 048
  4. PAXTRAT [Concomitant]
     Indication: DEPRESSION
     Dosage: 0.5 MG, QD (STARTED 3 OR 4 YEARS AGO)
     Route: 048
  5. LORAX//LORAZEPAM [Concomitant]
     Active Substance: LORAZEPAM
     Indication: DEPRESSION
     Dosage: 1 DF, QD (STARTED SINCE MANY YEARS AGO)
     Route: 048

REACTIONS (1)
  - Upper limb fracture [Recovering/Resolving]

NARRATIVE: CASE EVENT DATE: 20151113
